FAERS Safety Report 20137403 (Version 2)
Quarter: 2021Q4

REPORT INFORMATION
  Report Type: Spontaneous
  Country: ES (occurrence: ES)
  Receive Date: 20211201
  Receipt Date: 20211223
  Transmission Date: 20220303
  Serious: Yes (Death)
  Sender: FDA-Public Use
  Company Number: ES-AEMPS-1050039

PATIENT
  Age: 77 Year
  Sex: Male

DRUGS (12)
  1. RISPERIDONE [Suspect]
     Active Substance: RISPERIDONE
     Indication: Delirium
     Dosage: UNK (1.5 MG C/24 H)
     Route: 048
     Dates: start: 20200227, end: 20200730
  2. SERTRALINE HYDROCHLORIDE [Suspect]
     Active Substance: SERTRALINE HYDROCHLORIDE
     Indication: Product used for unknown indication
     Dosage: UNK (100.0 MG C/24 H NOC)
     Route: 048
     Dates: start: 20200420, end: 20200730
  3. FOLIC ACID [Concomitant]
     Active Substance: FOLIC ACID
     Indication: Folate deficiency
     Dosage: UNK (5.0 MG C / 48 HOURS)
     Route: 048
     Dates: start: 20190130
  4. MANIDIPINE HYDROCHLORIDE [Concomitant]
     Active Substance: MANIDIPINE HYDROCHLORIDE
     Indication: Hypertension
     Dosage: UNK (5.0 MG CE)
     Route: 048
     Dates: start: 20190108
  5. CARVEDILOL CINFA [Concomitant]
     Indication: Essential hypertension
     Dosage: UNK (6.25 MG DE)
     Route: 048
     Dates: start: 20200707
  6. CALCIFEDIOL [Concomitant]
     Active Substance: CALCIFEDIOL
     Indication: Nephropathy
     Dosage: UNK (16000.0 IU WITH 30 DAYS)
     Route: 048
     Dates: start: 20180425
  7. MYCOSTATIN [Concomitant]
     Active Substance: NYSTATIN
     Indication: Neoplasm malignant
     Dosage: UNK (500000.0 IU C / 6 HOURS)
     Route: 048
     Dates: start: 20200116
  8. Nolotil [Concomitant]
     Indication: Product used for unknown indication
     Dosage: UNK (575.0 MG DECE)
     Route: 048
     Dates: start: 20181009
  9. REPAGLINIDE [Concomitant]
     Active Substance: REPAGLINIDE
     Indication: Diabetes mellitus
     Dosage: UNK (0.5 MG CE)
     Route: 048
     Dates: start: 20200605
  10. OMEPRAZOL CINFA [Concomitant]
     Indication: Back pain
     Dosage: UNK (20.0 MG A-DE)
     Route: 048
     Dates: start: 20100717
  11. LINAGLIPTIN [Concomitant]
     Active Substance: LINAGLIPTIN
     Indication: Diabetes mellitus
     Dosage: UNK (5.0 MG C/24 H)
     Route: 048
     Dates: start: 20200521
  12. ZALDIAR [Concomitant]
     Active Substance: ACETAMINOPHEN\TRAMADOL HYDROCHLORIDE
     Indication: Product used for unknown indication
     Dosage: UNK (1.0 COMP C/12 H)
     Route: 048
     Dates: start: 20190408

REACTIONS (1)
  - Neurological decompensation [Fatal]

NARRATIVE: CASE EVENT DATE: 20200728
